FAERS Safety Report 10466063 (Version 2)
Quarter: 2014Q4

REPORT INFORMATION
  Report Type: Spontaneous
  Country: US (occurrence: US)
  Receive Date: 20140922
  Receipt Date: 20141001
  Transmission Date: 20150528
  Serious: Yes (Other)
  Sender: FDA-Public Use
  Company Number: US-AMGEN-USASP2014071448

PATIENT
  Age: 53 Year
  Sex: Female

DRUGS (1)
  1. ENBREL [Suspect]
     Active Substance: ETANERCEPT
     Indication: PSORIATIC ARTHROPATHY
     Dosage: 50 MG, QWK
     Route: 065
     Dates: start: 20140825, end: 20140917

REACTIONS (8)
  - Hypoaesthesia [Not Recovered/Not Resolved]
  - Wound complication [Not Recovered/Not Resolved]
  - Skin ulcer [Not Recovered/Not Resolved]
  - Perineal ulceration [Not Recovered/Not Resolved]
  - Meniscus injury [Not Recovered/Not Resolved]
  - Wound secretion [Not Recovered/Not Resolved]
  - Musculoskeletal stiffness [Not Recovered/Not Resolved]
  - Pain in extremity [Not Recovered/Not Resolved]

NARRATIVE: CASE EVENT DATE: 201409
